FAERS Safety Report 25017580 (Version 1)
Quarter: 2025Q1

REPORT INFORMATION
  Report Type: Report from Study
  Country: BR (occurrence: BR)
  Receive Date: 20250227
  Receipt Date: 20250227
  Transmission Date: 20250409
  Serious: Yes (Hospitalization)
  Sender: BIOGEN
  Company Number: BR-BIOGEN-2025BI01301762

PATIENT
  Age: 37 Year
  Sex: Female
  Weight: 65 kg

DRUGS (2)
  1. TYSABRI [Suspect]
     Active Substance: NATALIZUMAB
     Indication: Multiple sclerosis
     Route: 050
  2. NORTRIPTYLINE [Concomitant]
     Active Substance: NORTRIPTYLINE
     Indication: Product used for unknown indication
     Dosage: 1 TABLET AT NIGHT
     Route: 050

REACTIONS (2)
  - Diabetes mellitus [Unknown]
  - Vision blurred [Unknown]

NARRATIVE: CASE EVENT DATE: 20240101
